FAERS Safety Report 5222164-2 (Version None)
Quarter: 2007Q1

REPORT INFORMATION
  Report Type: 
  Country: None (occurrence: None)
  Receive Date: 20070129
  Receipt Date: 20060815
  Transmission Date: 20070707
  Serious: No
  Sender: FDA-Public Use
  Company Number: US-GLAXOSMITHKLINE-A0616739A

PATIENT
  Age: 60 Year
  Sex: Male

DRUGS (2)
  1. WELLBUTRIN [Suspect]
     Dosage: 300MG PER DAY
     Route: 048
     Dates: start: 20060701, end: 20060812
  2. PROZAC [Concomitant]

REACTIONS (3)
  - AGITATION [None]
  - BALANCE DISORDER [None]
  - INSOMNIA [None]
